FAERS Safety Report 11184708 (Version 3)
Quarter: 2015Q3

REPORT INFORMATION
  Report Type: Report from Study
  Country: GB (occurrence: GB)
  Receive Date: 20150612
  Receipt Date: 20150720
  Transmission Date: 20151125
  Serious: Yes (Hospitalization)
  Sender: FDA-Public Use
  Company Number: GB-BAYER-2014-185230

PATIENT
  Age: 52 Year
  Sex: Male
  Weight: 69.9 kg

DRUGS (12)
  1. RADIUM-223 DICHLORIDE [Suspect]
     Active Substance: RADIUM RA-223 DICHLORIDE
     Indication: METASTASES TO BONE
     Dosage: 50 KBQ / SALINE
     Route: 042
     Dates: start: 20150122, end: 20150122
  2. ADDITIONAL STUDY MEDICATION [Suspect]
     Active Substance: UNSPECIFIED INGREDIENT
     Indication: PROSTATE CANCER METASTATIC
     Dosage: 5 MG, QD
     Route: 048
     Dates: start: 20141101, end: 20141127
  3. LANSOPRAZOLE. [Concomitant]
     Active Substance: LANSOPRAZOLE
     Indication: GASTROOESOPHAGEAL REFLUX PROPHYLAXIS
     Dosage: DAILY DOSE 30 MG
     Route: 048
     Dates: start: 20140826
  4. ADDITIONAL STUDY MEDICATION [Suspect]
     Active Substance: UNSPECIFIED INGREDIENT
     Indication: PROSTATE CANCER METASTATIC
     Dosage: 10 MG, QD
     Route: 048
     Dates: start: 20141128, end: 20150106
  5. AMOXICILLIN. [Concomitant]
     Active Substance: AMOXICILLIN
     Indication: UPPER RESPIRATORY TRACT INFECTION
     Dosage: DAILY DOSE 1500 MG
     Route: 048
     Dates: start: 20140908, end: 20140922
  6. ADDITIONAL STUDY MEDICATION [Suspect]
     Active Substance: UNSPECIFIED INGREDIENT
     Indication: PROSTATE CANCER METASTATIC
     Dosage: 10 MG, QD
     Route: 048
     Dates: start: 20150107, end: 20150205
  7. ADDITIONAL STUDY MEDICATION [Suspect]
     Active Substance: UNSPECIFIED INGREDIENT
     Indication: PROSTATE CANCER STAGE IV
     Dosage: 1000 MG, QD
     Route: 048
     Dates: start: 20140905, end: 20150205
  8. RADIUM-223 DICHLORIDE [Suspect]
     Active Substance: RADIUM RA-223 DICHLORIDE
     Indication: PROSTATE CANCER STAGE IV
     Dosage: 50 KBQ / SALINE
     Route: 042
     Dates: start: 20140905, end: 20150122
  9. ADDITIONAL STUDY MEDICATION [Suspect]
     Active Substance: UNSPECIFIED INGREDIENT
     Indication: METASTASES TO BONE
  10. RAMIPRIL. [Concomitant]
     Active Substance: RAMIPRIL
     Indication: HYPERTENSION
     Dosage: DAILY DOSE 10 MG
     Route: 048
     Dates: start: 20140724
  11. ADDITIONAL STUDY MEDICATION [Suspect]
     Active Substance: UNSPECIFIED INGREDIENT
     Indication: PROSTATE CANCER METASTATIC
     Dosage: 10 MG, QD
     Route: 048
     Dates: start: 20140905, end: 20141004
  12. ADDITIONAL STUDY MEDICATION [Suspect]
     Active Substance: UNSPECIFIED INGREDIENT
     Indication: METASTASES TO BONE
     Dosage: 5 MG, QD
     Route: 048
     Dates: start: 20141006, end: 20141031

REACTIONS (1)
  - Cauda equina syndrome [Recovered/Resolved]

NARRATIVE: CASE EVENT DATE: 20141022
